FAERS Safety Report 9221610 (Version 1)
Quarter: 2013Q1

REPORT INFORMATION
  Report Type: Spontaneous
  Country: US (occurrence: None)
  Receive Date: 20120831
  Receipt Date: 20120831
  Transmission Date: 20140127
  Serious: No
  Sender: FDA-Public Use
  Company Number: 1000030621

PATIENT
  Age: 70 Year
  Sex: Female

DRUGS (5)
  1. DALIRESP [Suspect]
     Indication: CHRONIC OBSTRUCTIVE PULMONARY DISEASE
     Route: 048
     Dates: start: 20120515, end: 20120516
  2. ADVAIR (SERETIDE ) (SERETIDE) [Concomitant]
  3. SPIRIVA (TIOTROPIUM BROMIDE) (TIOTROPIUM BROMIDE) [Concomitant]
  4. VERAPAMIL (VERAPAMIL) (VERAPAMIL) [Concomitant]
  5. LASIX (FUROSEMIDE) (FUROSEMIDE) [Concomitant]

REACTIONS (1)
  - Dizziness [None]
